FAERS Safety Report 8774720 (Version 1)
Quarter: 2012Q4

REPORT INFORMATION
  Report Type: 
  Country: PL (occurrence: PL)
  Receive Date: 20120910
  Receipt Date: 20120910
  Transmission Date: 20130627
  Serious: Yes (Hospitalization)
  Sender: FDA-Public Use
  Company Number: PL-PFIZER INC-2012218695

PATIENT
  Age: 54 Year
  Sex: Female
  Weight: 55 kg

DRUGS (2)
  1. VENLAFAXINE HYDROCHLORIDE [Suspect]
     Dosage: UNK
  2. CARBAMAZEPINE [Suspect]
     Dosage: UNK

REACTIONS (3)
  - Tachycardia [Recovered/Resolved]
  - Altered state of consciousness [Recovered/Resolved]
  - Agitation [Recovered/Resolved]
